FAERS Safety Report 9365687 (Version 1)
Quarter: 2013Q2

REPORT INFORMATION
  Report Type: Spontaneous
  Country: US (occurrence: None)
  Receive Date: 20130624
  Receipt Date: 20130624
  Transmission Date: 20140414
  Serious: Yes (Hospitalization)
  Sender: FDA-Public Use
  Company Number: None

PATIENT
  Age: 65 Year
  Sex: Male
  Weight: 123 kg

DRUGS (1)
  1. BC POWDER [Suspect]
     Indication: PAIN
     Dosage: PACKET
     Route: 048

REACTIONS (3)
  - Syncope [None]
  - Rectal haemorrhage [None]
  - Gastritis [None]
